FAERS Safety Report 9742646 (Version 2)
Quarter: 2013Q4

REPORT INFORMATION
  Report Type: Report from Study
  Country: US (occurrence: US)
  Receive Date: 20131210
  Receipt Date: 20131210
  Transmission Date: 20140711
  Serious: Yes (Other)
  Sender: FDA-Public Use
  Company Number: US-BAYER-2013-123431

PATIENT
  Age: 64 Year
  Sex: Male
  Weight: 52.15 kg

DRUGS (9)
  1. STIVARGA [Suspect]
     Indication: RECTOSIGMOID CANCER
     Dosage: 160 MG/DAY
     Route: 048
     Dates: start: 201306, end: 2013
  2. STIVARGA [Suspect]
     Indication: METASTASES TO LIVER
     Dosage: 120 MG/DAY
     Route: 048
     Dates: start: 2013
  3. STIVARGA [Suspect]
     Indication: METASTASES TO PLEURA
  4. CLONIDINE [Concomitant]
     Dosage: 0.1 MG, UNK
  5. CELEBREX [Concomitant]
     Dosage: 200 MG, UNK
  6. OMEPRAZOLE [Concomitant]
     Dosage: 20 MG, UNK
  7. OLANZAPINE [Concomitant]
     Dosage: 2.5 MG, UNK
  8. GABAPENTIN [Concomitant]
     Dosage: 100 MG, UNK
  9. CETAPHIL [BUTYL,CETYL ALCOH,PROPYL GLYC,NA+ LAURYL SULF,STEARYL AL [Concomitant]

REACTIONS (10)
  - Local swelling [Unknown]
  - Dry skin [Unknown]
  - Skin fissures [Unknown]
  - Mobility decreased [Unknown]
  - Pain [Unknown]
  - Skin discolouration [Unknown]
  - Skin exfoliation [Unknown]
  - Skin exfoliation [None]
  - Skin induration [None]
  - Dry mouth [None]
